APPROVED DRUG PRODUCT: FLUOXETINE HYDROCHLORIDE
Active Ingredient: FLUOXETINE HYDROCHLORIDE
Strength: EQ 60MG BASE
Dosage Form/Route: TABLET;ORAL
Application: N202133 | Product #001
Applicant: TWI PHARMACEUTICALS INC
Approved: Oct 6, 2011 | RLD: Yes | RS: No | Type: DISCN